FAERS Safety Report 7963768-3 (Version None)
Quarter: 2011Q4

REPORT INFORMATION
  Report Type: 
  Country: None (occurrence: None)
  Receive Date: 20111208
  Receipt Date: 20111026
  Transmission Date: 20120403
  Serious: No
  Sender: FDA-Public Use
  Company Number: US-BAYER-2011-104971

PATIENT
  Age: 56 Year
  Sex: Female
  Weight: 57 kg

DRUGS (3)
  1. PHILLIPS' LIQUID GELS STOOL SOFTENER [Suspect]
     Dosage: 2 TABLETS TWICE DAILY, 30 COUNT
     Route: 048
     Dates: start: 20111021, end: 20111025
  2. ALEVE (CAPLET) [Suspect]
     Dosage: UNK
     Route: 048
  3. IBUPROFEN [Suspect]

REACTIONS (2)
  - GASTROINTESTINAL PAIN [None]
  - VOMITING [None]
